FAERS Safety Report 8487696-2 (Version None)
Quarter: 2012Q3

REPORT INFORMATION
  Report Type: 
  Country: None (occurrence: None)
  Receive Date: 20120705
  Receipt Date: 20120624
  Transmission Date: 20120928
  Serious: Yes (Other)
  Sender: FDA-Public Use
  Company Number: CA-JNJFOC-20120614132

PATIENT
  Sex: Male
  Weight: 57 kg

DRUGS (4)
  1. REMICADE [Suspect]
     Indication: CROHN'S DISEASE
     Dosage: LAST INFUSION RECEIVED
     Route: 042
     Dates: start: 20120608
  2. IRON [Concomitant]
     Route: 048
  3. MESALAMINE [Concomitant]
     Route: 065
  4. VENOFER [Concomitant]
     Route: 065

REACTIONS (1)
  - NIPPLE NEOPLASM [None]
